FAERS Safety Report 4615483-1 (Version None)
Quarter: 2005Q1

REPORT INFORMATION
  Report Type: 
  Country: None (occurrence: None)
  Receive Date: 20050317
  Receipt Date: 20050304
  Transmission Date: 20050727
  Serious: Yes (Hospitalization)
  Sender: FDA-Public Use
  Company Number: 2004031076

PATIENT
  Age: 67 Year
  Sex: Male

DRUGS (13)
  1. LIPITOR [Suspect]
     Indication: HYPERLIPIDAEMIA
     Dosage: 10 MG (1 IN 1 D), ORAL
     Route: 048
     Dates: start: 20031210
  2. ASPIRIN [Concomitant]
  3. TICLOPIDINE HCL [Concomitant]
  4. WARFARIN SODIUM [Concomitant]
  5. LISINOPRIL [Concomitant]
  6. GLYBURIDE [Concomitant]
  7. FUROSEMIDE [Concomitant]
  8. ISOSORBIDE DINITRATE [Concomitant]
  9. SPIRONOLACTONE [Concomitant]
  10. CARVEDILOL [Concomitant]
  11. LANSOPRAZOLE [Concomitant]
  12. INSULIN LISPRO (INSULIN LISPRO) [Concomitant]
  13. INSULIN HUMAN (INSULIN HUMAN) [Concomitant]

REACTIONS (7)
  - CONDITION AGGRAVATED [None]
  - DIABETES MELLITUS [None]
  - DIABETES MELLITUS INADEQUATE CONTROL [None]
  - GLYCOSYLATED HAEMOGLOBIN INCREASED [None]
  - REFLUX OESOPHAGITIS [None]
  - RENAL IMPAIRMENT [None]
  - STRESS [None]
